FAERS Safety Report 4505377-4 (Version None)
Quarter: 2004Q4

REPORT INFORMATION
  Report Type: 
  Country: None (occurrence: None)
  Receive Date: 20041015
  Receipt Date: 20040319
  Transmission Date: 20050328
  Serious: Yes (Other)
  Sender: FDA-Public Use
  Company Number: 2004019527

PATIENT
  Sex: Female

DRUGS (1)
  1. NEURONTIN [Suspect]
     Indication: FIBROMYALGIA
     Dosage: 400 MG ID ORAL
     Route: 048
     Dates: start: 20040101

REACTIONS (3)
  - DIARRHOEA [None]
  - MUSCLE CRAMP [None]
  - WEIGHT INCREASED [None]
